FAERS Safety Report 9580623 (Version 1)
Quarter: 2013Q4

REPORT INFORMATION
  Report Type: Spontaneous
  Country: US (occurrence: US)
  Receive Date: 20131002
  Receipt Date: 20131002
  Transmission Date: 20140711
  Serious: No
  Sender: FDA-Public Use
  Company Number: US-B.I. PHARMACEUTICALS,INC./RIDGEFIELD-2013-BI-30006BP

PATIENT
  Age: 84 Year
  Sex: Male
  Weight: 71 kg

DRUGS (16)
  1. PRADAXA [Suspect]
     Indication: ATRIAL FIBRILLATION
     Dosage: 300 MG
     Route: 048
     Dates: start: 201306, end: 201308
  2. SIMVASTATIN [Concomitant]
     Indication: BLOOD CHOLESTEROL INCREASED
     Dosage: 40 MG
     Route: 048
  3. SPIRIVA [Concomitant]
     Indication: CHRONIC OBSTRUCTIVE PULMONARY DISEASE
     Dosage: 18 MCG
     Route: 048
  4. IMMODIUM [Concomitant]
     Indication: DIARRHOEA
     Route: 048
  5. PREDNISONE [Concomitant]
     Dosage: 5 MG
     Route: 048
  6. IRON [Concomitant]
     Dosage: 85 MG
     Route: 048
  7. LORAZEPAM [Concomitant]
     Indication: ANXIETY
     Route: 048
  8. PROCTO 2.5% CREAM [Concomitant]
     Indication: HAEMORRHOIDS
     Route: 054
  9. SPIRONOLACTONE [Concomitant]
     Indication: HYPERTENSION
     Dosage: 25 MG
     Route: 048
  10. FLUTICASONE [Concomitant]
     Dosage: STRENGTH: 1 SPRAY; DAILY DOSE: 2 SPRAYS
     Route: 045
  11. MELATONIN [Concomitant]
     Indication: INSOMNIA
     Dosage: 3 MG
     Route: 048
  12. HYDROCODONE [Concomitant]
     Indication: SPONDYLITIS
     Dosage: STRENGTH: 10-325MG; DAILY DOSE: 10-325MG
     Route: 048
  13. REVATIO [Concomitant]
     Indication: PULMONARY ARTERIAL HYPERTENSION
     Dosage: 60 MG
     Route: 048
  14. METHOCARBAMOL [Concomitant]
     Indication: BACK PAIN
     Dosage: 1500 MG
     Route: 048
  15. OMEPRAZOLE [Concomitant]
     Indication: GASTROOESOPHAGEAL REFLUX DISEASE
     Dosage: 20 MG
     Route: 048
  16. SERTRALINE [Concomitant]
     Indication: DEPRESSION
     Dosage: 20 MG
     Route: 048

REACTIONS (3)
  - Skin discolouration [Not Recovered/Not Resolved]
  - Skin discolouration [Not Recovered/Not Resolved]
  - Haematochezia [Recovered/Resolved]
